FAERS Safety Report 20317769 (Version 6)
Quarter: 2022Q2

REPORT INFORMATION
  Report Type: Spontaneous
  Country: PL (occurrence: PL)
  Receive Date: 20220110
  Receipt Date: 20220415
  Transmission Date: 20220721
  Serious: Yes (Death, Life-Threatening, Hospitalization, Other)
  Sender: FDA-Public Use
  Company Number: PL-MYLANLABS-2022M1001253

PATIENT
  Age: 36 Year
  Sex: Male

DRUGS (24)
  1. OLANZAPINE [Suspect]
     Active Substance: OLANZAPINE
     Indication: Mental disorder
     Dosage: 10 MILLIGRAM, HS
  2. OLANZAPINE [Suspect]
     Active Substance: OLANZAPINE
     Indication: Catatonia
     Dosage: 10 MG, PER DAY IN THE EVENING
     Route: 065
  3. OLANZAPINE [Suspect]
     Active Substance: OLANZAPINE
     Indication: Intellectual disability
  4. OLANZAPINE [Suspect]
     Active Substance: OLANZAPINE
     Indication: Schizophrenia
  5. OLANZAPINE [Suspect]
     Active Substance: OLANZAPINE
     Indication: Catatonia
  6. OLANZAPINE [Suspect]
     Active Substance: OLANZAPINE
     Indication: Obsessive-compulsive disorder
  7. SIMVASTATIN [Suspect]
     Active Substance: SIMVASTATIN
     Indication: Lipid metabolism disorder
     Dosage: 20 MILLIGRAM, QD (20 MILLIGRAM PER DAY)
  8. SIMVASTATIN [Suspect]
     Active Substance: SIMVASTATIN
     Indication: Hypertension
  9. OLANZAPINE [Suspect]
     Active Substance: OLANZAPINE
     Indication: Schizophrenia
     Dosage: 10 MILLIGRAM, QD (OLANZAPINE 10 MG/D  )
  10. FLUVOXAMINE [Suspect]
     Active Substance: FLUVOXAMINE
     Indication: Mental disorder
     Dosage: 200 MILLIGRAM, QD
  11. FLUVOXAMINE [Suspect]
     Active Substance: FLUVOXAMINE
     Indication: Obsessive-compulsive disorder
     Dosage: 300 MILLIGRAM, QD, 100 MG IN THE MORNING AND 200 MG IN THE EVENING
  12. FLUVOXAMINE [Suspect]
     Active Substance: FLUVOXAMINE
     Indication: Catatonia
     Dosage: 100 MILLIGRAM, EVERY MORNING
     Route: 065
  13. FLUVOXAMINE [Suspect]
     Active Substance: FLUVOXAMINE
     Indication: Intellectual disability
  14. FLUVOXAMINE [Suspect]
     Active Substance: FLUVOXAMINE
     Indication: Schizophrenia
  15. RISPERIDONE [Suspect]
     Active Substance: RISPERIDONE
     Indication: Mental disorder
     Dosage: 4.5 MILLIGRAM, QD
  16. RISPERIDONE [Suspect]
     Active Substance: RISPERIDONE
     Indication: Intellectual disability
     Dosage: DOSE WAS GRADUALLY REDUCED
     Route: 048
  17. RISPERIDONE [Suspect]
     Active Substance: RISPERIDONE
     Indication: Schizophrenia
     Dosage: UNK
  18. RISPERIDONE [Suspect]
     Active Substance: RISPERIDONE
     Indication: Obsessive-compulsive disorder
  19. RISPERIDONE [Suspect]
     Active Substance: RISPERIDONE
     Indication: Schizophrenia
     Dosage: UNK
  20. PROPRANOLOL [Concomitant]
     Active Substance: PROPRANOLOL HYDROCHLORIDE
     Indication: Hypertension
     Dosage: 20 MILLIGRAM, QD  (20 MG, PER DAY)
  21. SIMVASTATIN [Concomitant]
     Active Substance: SIMVASTATIN
     Indication: Hypertension
     Dosage: 20 MILLIGRAM, QD
     Route: 065
  22. FLUVOXAMINE [Concomitant]
     Active Substance: FLUVOXAMINE
     Indication: Catatonia
     Dosage: 300 MILLIGRAM, QD (FLUVOXAMINE 100 MG IN THE MORNING AND 200 MG IN THE EVENING)
  23. FLUVOXAMINE [Concomitant]
     Active Substance: FLUVOXAMINE
     Indication: Obsessive-compulsive disorder
     Dosage: 200 MILLIGRAM, QD (IN THE EVENING)
  24. FLUVOXAMINE [Concomitant]
     Active Substance: FLUVOXAMINE
     Dosage: 100 MILLIGRAM, QD (IN THE MORNING)

REACTIONS (11)
  - Pulmonary embolism [Fatal]
  - Cardiac arrest [Fatal]
  - Drug ineffective [Unknown]
  - Catatonia [Unknown]
  - Gynaecomastia [Unknown]
  - Obesity [Unknown]
  - Psychomotor skills impaired [Unknown]
  - Joint swelling [Unknown]
  - Serotonin syndrome [Unknown]
  - Upper respiratory tract congestion [Unknown]
  - Cough [Unknown]
